FAERS Safety Report 5486230-9 (Version None)
Quarter: 2007Q4

REPORT INFORMATION
  Report Type: 
  Country: None (occurrence: None)
  Receive Date: 20071005
  Receipt Date: 20070717
  Transmission Date: 20080405
  Serious: No
  Sender: FDA-Public Use
  Company Number: PHEH2007US10128

PATIENT

DRUGS (2)
  1. TEKTURNA [Suspect]
  2. HYDROCHLOROTHIAZIDE [Concomitant]

REACTIONS (1)
  - BLOOD PRESSURE INCREASED [None]
